FAERS Safety Report 21547007 (Version 1)
Quarter: 2022Q4

REPORT INFORMATION
  Report Type: Spontaneous
  Country: US (occurrence: US)
  Receive Date: 20221103
  Receipt Date: 20221103
  Transmission Date: 20230113
  Serious: No
  Sender: FDA-Public Use
  Company Number: US-ELI_LILLY_AND_COMPANY-US202210014904

PATIENT
  Sex: Female

DRUGS (2)
  1. MOUNJARO [Suspect]
     Active Substance: TIRZEPATIDE
     Indication: Weight increased
     Dosage: 2.5 MG, UNKNOWN
     Route: 058
     Dates: start: 20221007
  2. MOUNJARO [Suspect]
     Active Substance: TIRZEPATIDE
     Indication: Weight increased
     Dosage: 2.5 MG, UNKNOWN
     Route: 058
     Dates: start: 20221007

REACTIONS (3)
  - Decreased appetite [Unknown]
  - Abdominal distension [Unknown]
  - Off label use [Unknown]
